FAERS Safety Report 10608217 (Version 1)
Quarter: 2014Q4

REPORT INFORMATION
  Report Type: Spontaneous
  Country: FR (occurrence: FR)
  Receive Date: 20141125
  Receipt Date: 20141125
  Transmission Date: 20150529
  Serious: Yes (Death, Hospitalization, Other)
  Sender: FDA-Public Use
  Company Number: FR-ASTRAZENECA-2014SE87796

PATIENT
  Age: 30439 Day
  Sex: Male

DRUGS (14)
  1. TANAKAN [Concomitant]
     Active Substance: GINKGO
  2. ELISOR [Concomitant]
     Active Substance: PRAVASTATIN SODIUM
  3. INEXIUM [Suspect]
     Active Substance: ESOMEPRAZOLE
     Route: 048
     Dates: start: 20140624, end: 20140723
  4. TIAPRIDAL [Suspect]
     Active Substance: TIAPRIDE HYDROCHLORIDE
     Dosage: 5 MG/DROP
     Route: 048
     Dates: start: 20140719, end: 20140722
  5. AUGMENTIN [Suspect]
     Active Substance: AMOXICILLIN\CLAVULANATE POTASSIUM
     Route: 065
     Dates: start: 20140706, end: 20140710
  6. DETENSIEL [Concomitant]
     Active Substance: BISOPROLOL FUMARATE
  7. OROZAMUDOL [Suspect]
     Active Substance: TRAMADOL
     Route: 048
     Dates: start: 20140718, end: 20140723
  8. DOLIPRANE [Concomitant]
     Active Substance: ACETAMINOPHEN
  9. PIPERACILLIN AND TAZOBACTAM [Suspect]
     Active Substance: PIPERACILLIN SODIUM\TAZOBACTAM SODIUM
     Indication: SEPSIS
     Route: 042
     Dates: start: 20140711, end: 20140723
  10. ATACAND [Concomitant]
     Active Substance: CANDESARTAN CILEXETIL
     Route: 048
  11. PIPERACILLIN AND TAZOBACTAM [Suspect]
     Active Substance: PIPERACILLIN SODIUM\TAZOBACTAM SODIUM
     Indication: SEPSIS
     Dosage: TAZOCILLIN
     Route: 065
     Dates: start: 20140701, end: 20140706
  12. CALCIPARINE [Concomitant]
     Active Substance: HEPARIN CALCIUM
     Dates: start: 20140624, end: 20140730
  13. RANITIDINE [Concomitant]
     Active Substance: RANITIDINE\RANITIDINE HYDROCHLORIDE
  14. THERALENE [Concomitant]
     Active Substance: TRIMEPRAZINE

REACTIONS (7)
  - Pyrexia [Unknown]
  - Acute generalised exanthematous pustulosis [Recovering/Resolving]
  - Sepsis [Unknown]
  - Eosinophilia [Unknown]
  - Neutrophil count increased [Unknown]
  - Leukocytosis [Unknown]
  - Staphylococcal infection [None]

NARRATIVE: CASE EVENT DATE: 20140721
